FAERS Safety Report 4944143-2 (Version None)
Quarter: 2006Q1

REPORT INFORMATION
  Report Type: 
  Country: None (occurrence: None)
  Receive Date: 20060310
  Receipt Date: 20060301
  Transmission Date: 20060701
  Serious: Yes (Life-Threatening, Hospitalization)
  Sender: FDA-Public Use
  Company Number: SU-2006-004690

PATIENT
  Age: 33 Year
  Sex: Female

DRUGS (7)
  1. BENICAR HCT [Suspect]
     Indication: URTICARIA
     Dosage: 40.125 MG QD PO
     Route: 048
     Dates: start: 20051101, end: 20060131
  2. AVAPRO [Suspect]
     Indication: HYPERTENSION
     Dosage: PO
     Route: 048
     Dates: start: 20060131, end: 20060201
  3. PREDNISONE [Suspect]
     Indication: URTICARIA
     Dosage: PO
     Route: 048
     Dates: start: 20060101, end: 20060101
  4. CLONIDINE [Concomitant]
  5. TOPROL-XL [Concomitant]
  6. NORVASC [Concomitant]
  7. BENADRYL [Concomitant]

REACTIONS (24)
  - ANGIONEUROTIC OEDEMA [None]
  - BILE DUCT STONE [None]
  - BILIARY CIRRHOSIS PRIMARY [None]
  - BONE MARROW DISORDER [None]
  - CHOLANGITIS SCLEROSING [None]
  - CHOLECYSTITIS [None]
  - CHOLELITHIASIS [None]
  - DEHYDRATION [None]
  - DIZZINESS [None]
  - DRUG HYPERSENSITIVITY [None]
  - HAEMOCHROMATOSIS [None]
  - HEPATIC NECROSIS [None]
  - HEPATITIS [None]
  - INFECTION [None]
  - LEUKAEMIA [None]
  - LEUKOCYTOSIS [None]
  - LYMPHOMA [None]
  - NEOPLASM MALIGNANT [None]
  - ORAL INTAKE REDUCED [None]
  - PANCREATIC MASS [None]
  - RASH MACULO-PAPULAR [None]
  - RENAL FAILURE ACUTE [None]
  - THROMBOCYTOPENIA [None]
  - UNEVALUABLE EVENT [None]
